FAERS Safety Report 6646881-2 (Version None)
Quarter: 2010Q1

REPORT INFORMATION
  Report Type: 
  Country: None (occurrence: None)
  Receive Date: 20100323
  Receipt Date: 20100309
  Transmission Date: 20100710
  Serious: Yes (Hospitalization)
  Sender: FDA-Public Use
  Company Number: NO-MYLANLABS-2010S1003927

PATIENT
  Age: 42 Year
  Sex: Female

DRUGS (4)
  1. FLUOXETINE [Suspect]
     Indication: DRUG USE FOR UNKNOWN INDICATION
     Dosage: DAILY DOSE: 800 (E2B UNIT: 003)
     Route: 048
  2. ZOPICLONE [Suspect]
     Indication: DRUG USE FOR UNKNOWN INDICATION
     Route: 048
  3. SERTINDOLE [Suspect]
     Indication: DRUG USE FOR UNKNOWN INDICATION
     Dosage: DAILY DOSE: 1792 (E2B UNIT: 003)
     Route: 048
  4. LITHIUM [Concomitant]
     Indication: SCHIZOAFFECTIVE DISORDER
     Dosage: DAILY DOSE: 83 (E2B UNIT: 003)

REACTIONS (5)
  - INTENTIONAL OVERDOSE [None]
  - LEUKOCYTOSIS [None]
  - LUNG DISORDER [None]
  - SOMNOLENCE [None]
  - SUICIDE ATTEMPT [None]
